FAERS Safety Report 8815003 (Version 2)
Quarter: 2012Q4

REPORT INFORMATION
  Report Type: 
  Country: NL (occurrence: NL)
  Receive Date: 20120928
  Receipt Date: 20121212
  Transmission Date: 20130627
  Serious: Yes (Hospitalization)
  Sender: FDA-Public Use
  Company Number: NL-PFIZER INC-2012236221

PATIENT
  Age: 69 Year
  Sex: Female
  Weight: 70 kg

DRUGS (14)
  1. GENOTROPIN [Suspect]
     Indication: GROWTH HORMONE DEFICIENCY
     Dosage: 0.4 mg/day, 7 injections/week
     Route: 058
     Dates: start: 20060328
  2. TEMAZEPAM [Concomitant]
     Indication: SLEEP DISORDER NOS
     Dosage: UNK
     Dates: start: 19890901
  3. LEVOTHYROXINE [Concomitant]
     Indication: BLOOD THYROID STIMULATING HORMONE DECREASED
     Dosage: UNK
     Dates: start: 19920701
  4. LEVOTHYROXINE [Concomitant]
     Indication: PRIMARY HYPOTHYROIDISM
  5. ESTRADERM TTS [Concomitant]
     Indication: LUTEINIZING HORMONE DEFICIENCY
     Dosage: UNK
     Dates: start: 19930501
  6. ESTRADERM TTS [Concomitant]
     Indication: FOLLICLE-STIMULATING HORMONE DEFICIENCY
  7. ESTRADERM TTS [Concomitant]
     Indication: HYPOGONADISM FEMALE
  8. PROVERA [Concomitant]
     Indication: MENSTRUAL DISORDER NOS
     Dosage: UNK
     Dates: start: 19930701
  9. INDERAL ^IMPERIAL CHEMICAL INDUSTRIES^ [Concomitant]
     Indication: PALPITATION
     Dosage: UNK
     Dates: start: 19960201
  10. TIMOPTOL [Concomitant]
     Indication: EYE DISORDER NOS
     Dosage: UNK
     Dates: start: 19970122
  11. AMOXICILLIN [Concomitant]
     Indication: ACUTE SINUSITIS
     Dosage: UNK
     Dates: start: 19971217
  12. LOPERAMIDE [Concomitant]
     Indication: DIARRHEA OF PRESUMED INFECTIOUS ORIGIN
     Dosage: UNK
     Dates: start: 19990210
  13. HYDROCORTISONE [Concomitant]
     Indication: BLOOD CORTICOTROPHIN DECREASED
     Dosage: UNK
     Dates: start: 19920701
  14. LIPITOR [Concomitant]
     Indication: MENSTRUAL DISORDER NOS
     Dosage: UNK
     Dates: start: 20030318

REACTIONS (2)
  - Pituitary tumour benign [Recovered/Resolved]
  - Meningitis [Recovered/Resolved]
